FAERS Safety Report 17581885 (Version 1)
Quarter: 2020Q1

REPORT INFORMATION
  Report Type: Spontaneous
  Country: GB (occurrence: GB)
  Receive Date: 20200325
  Receipt Date: 20200325
  Transmission Date: 20200409
  Serious: Yes (Hospitalization, Disabling)
  Sender: FDA-Public Use
  Company Number: GB-MYLANLABS-2020M1030562

PATIENT
  Age: 59 Year
  Sex: Female

DRUGS (16)
  1. PROPRANOLOL [Concomitant]
     Active Substance: PROPRANOLOL HYDROCHLORIDE
     Dosage: INITIALLY ONCE DAILY AS TOLERATED.
  2. CEFALEXIN [Concomitant]
     Active Substance: CEPHALEXIN
     Dosage: 1000 MILLIGRAM, QD
     Dates: start: 20190617
  3. FLUCONAZOLE. [Concomitant]
     Active Substance: FLUCONAZOLE
     Dosage: ONE TO BE TAKEN IMMEDIATELY
     Dates: start: 20190625, end: 20190625
  4. MIRTAZAPINE. [Suspect]
     Active Substance: MIRTAZAPINE
     Indication: PRODUCT USED FOR UNKNOWN INDICATION
     Dosage: 15 MILLIGRAM, QD (NIGHT)
     Route: 048
  5. MONTELUKAST [Concomitant]
     Active Substance: MONTELUKAST SODIUM
     Dosage: 10 MILLIGRAM, QD (NIGHT)
     Route: 048
  6. DICLOFENAC [Concomitant]
     Active Substance: DICLOFENAC
     Dosage: USING UP TO THREE TIMES DAILY AS NECESSARY
  7. ZOPICLONE [Concomitant]
     Active Substance: ZOPICLONE
     Dosage: 7.5 MILLIGRAM, QD (NIGHT)
  8. VENLAFAXINE [Suspect]
     Active Substance: VENLAFAXINE HYDROCHLORIDE
     Indication: PRODUCT USED FOR UNKNOWN INDICATION
     Dosage: 150 MILLIGRAM, QD
     Route: 048
  9. BRALTUS [Concomitant]
     Active Substance: TIOTROPIUM BROMIDE
     Dosage: 10 MICROGRAM, QD
     Route: 055
  10. COCODAMOL [Concomitant]
     Active Substance: ACETAMINOPHEN\CODEINE PHOSPHATE
     Dosage: 4 DOSAGE FORM, QD (30MG/500MG)
  11. ZAPAIN [Concomitant]
     Active Substance: ACETAMINOPHEN\CODEINE PHOSPHATE
     Dosage: 4 DOSAGE FORM, QD (30MG/500MG)
  12. OMEPRAZOLE. [Concomitant]
     Active Substance: OMEPRAZOLE
     Dosage: 20 MILLIGRAM, QD
  13. FOSTAIR [Concomitant]
     Active Substance: BECLOMETHASONE\FORMOTEROL
     Dosage: 4 DOSAGE FORM, QD (100MICROGRAMS/DOSE / 6MICROGRAMS/DOSE. PUFFS)
     Route: 055
  14. SALBUTAMOL [Concomitant]
     Active Substance: ALBUTEROL
     Dosage: 100 MICROGRAM, PRN (FOUR TIMES DAILY)
     Route: 055
  15. CARBOCISTEINE [Concomitant]
     Active Substance: CARBOCYSTEINE
     Dosage: 30 MILLILITER, QD (250MG/5ML)
     Route: 048
  16. URSODEOXYCHOLIC ACID [Concomitant]
     Active Substance: URSODIOL
     Dosage: 900 MILLIGRAM, QD

REACTIONS (1)
  - Parkinsonism [Recovered/Resolved]
